FAERS Safety Report 4839078-X (Version None)
Quarter: 2005Q4

REPORT INFORMATION
  Report Type: 
  Country: None (occurrence: None)
  Receive Date: 20051129
  Receipt Date: 20050901
  Transmission Date: 20060501
  Serious: Yes (Other)
  Sender: FDA-Public Use
  Company Number: 2005-08-2251

PATIENT
  Age: 55 Year
  Sex: Female
  Weight: 61.8 kg

DRUGS (7)
  1. ADVAIR DISKUS 100/50 [Suspect]
     Indication: UPPER RESPIRATORY TRACT INFECTION
     Route: 055
     Dates: start: 20050712, end: 20050720
  2. NASONEX [Suspect]
     Indication: DRUG USE FOR UNKNOWN INDICATION
     Route: 045
     Dates: start: 20050712, end: 20050720
  3. ALBUTEROL [Concomitant]
  4. CELEBREX [Concomitant]
  5. METHOTREXATE [Concomitant]
  6. ELIDEL [Concomitant]
  7. CIPRO [Concomitant]
     Indication: URINARY TRACT INFECTION
     Dosage: 500MG TWICE PER DAY
     Route: 048
     Dates: start: 20050707, end: 20050717

REACTIONS (2)
  - ANOSMIA [None]
  - DYSGEUSIA [None]
